FAERS Safety Report 6981571-8 (Version None)
Quarter: 2010Q3

REPORT INFORMATION
  Report Type: 
  Country: None (occurrence: None)
  Receive Date: 20100914
  Receipt Date: 20100831
  Transmission Date: 20110219
  Serious: Yes (Hospitalization)
  Sender: FDA-Public Use
  Company Number: FR-SANOFI-AVENTIS-2010SA051674

PATIENT
  Age: 82 Year
  Sex: Male

DRUGS (12)
  1. CALCIPARINE [Suspect]
     Indication: PRODUCT USED FOR UNKNOWN INDICATION
     Route: 058
     Dates: start: 20090127
  2. KARDEGIC [Suspect]
     Route: 048
     Dates: end: 20090129
  3. PLAVIX [Suspect]
     Route: 048
  4. TAVANIC [Suspect]
     Indication: LUNG INFECTION
     Route: 048
     Dates: start: 20090119, end: 20090201
  5. PRAXILENE [Suspect]
     Route: 048
     Dates: end: 20090201
  6. BUMEX [Suspect]
     Route: 048
     Dates: end: 20090201
  7. ROCEPHIN [Suspect]
     Indication: LUNG INFECTION
     Route: 048
     Dates: start: 20090119, end: 20090201
  8. ADVIL LIQUI-GELS [Suspect]
     Indication: PRODUCT USED FOR UNKNOWN INDICATION
     Route: 048
     Dates: start: 20090127, end: 20090201
  9. ELISOR [Suspect]
     Indication: PRODUCT USED FOR UNKNOWN INDICATION
     Route: 048
     Dates: end: 20090201
  10. TAREG [Suspect]
     Route: 048
     Dates: end: 20090201
  11. ADANCOR [Concomitant]
     Indication: PRODUCT USED FOR UNKNOWN INDICATION
     Route: 048
  12. INSULATARD [Concomitant]
     Route: 058

REACTIONS (3)
  - HAEMATEMESIS [None]
  - MELAENA [None]
  - RENAL FAILURE ACUTE [None]
